FAERS Safety Report 23182649 (Version 2)
Quarter: 2023Q4

REPORT INFORMATION
  Report Type: Report from Study
  Country: TR (occurrence: TR)
  Receive Date: 20231114
  Receipt Date: 20231115
  Transmission Date: 20240109
  Serious: Yes (Hospitalization, Other)
  Sender: FDA-Public Use
  Company Number: TR-ALXN-202310TUR000071TR

PATIENT
  Sex: Female
  Weight: 75 kg

DRUGS (2)
  1. SOLIRIS [Suspect]
     Active Substance: ECULIZUMAB
     Indication: Paroxysmal nocturnal haemoglobinuria
     Dosage: 600 MILLIGRAM, QW
     Route: 042
  2. SOLIRIS [Suspect]
     Active Substance: ECULIZUMAB
     Dosage: 900 MILLIGRAM, Q2W
     Route: 042

REACTIONS (5)
  - Gallbladder obstruction [Unknown]
  - Back pain [Unknown]
  - Pain in extremity [Unknown]
  - Chest pain [Unknown]
  - Vomiting [Unknown]
